FAERS Safety Report 8193070-9 (Version None)
Quarter: 2012Q1

REPORT INFORMATION
  Report Type: 
  Country: None (occurrence: None)
  Receive Date: 20120308
  Receipt Date: 20120305
  Transmission Date: 20120608
  Serious: Yes (Death, Hospitalization)
  Sender: FDA-Public Use
  Company Number: US-AMGEN-USASP2012011255

PATIENT
  Age: 92 Year
  Sex: Female

DRUGS (24)
  1. ZOFRAN [Concomitant]
     Indication: VOMITING
  2. ISOSORBIDE DINITRATE [Concomitant]
  3. MYLANTA                            /00036701/ [Concomitant]
     Dosage: 2 UNK, QID
  4. MILK OF MAGNESIA TAB [Concomitant]
     Indication: CONSTIPATION
     Dosage: 30 UNK, UNK
  5. TUSSIN                             /00048001/ [Concomitant]
  6. ATROPINE [Concomitant]
     Dosage: 0.4 MG, UNK
  7. RAMIPRIL [Concomitant]
  8. PEPTO BISMOL                       /00139305/ [Concomitant]
  9. ZOFRAN [Concomitant]
     Indication: NAUSEA
     Dosage: 4 MG, Q6H
  10. BUMETANIDE [Concomitant]
     Indication: FLUID OVERLOAD
     Route: 048
  11. ALBUTEROL [Concomitant]
     Dosage: 2.5 MG, Q4H
  12. IMODIUM [Concomitant]
     Indication: DIARRHOEA
     Dosage: 2 MG, UNK
  13. HYDRALAZINE HCL [Concomitant]
  14. ORPHENADRINE CITRATE [Concomitant]
  15. SIMVASTATIN [Concomitant]
  16. TRAZODONE HCL [Concomitant]
  17. HYDROCODONE BITARTRATE AND ACETAMINOPHEN [Concomitant]
  18. TYLENOL (CAPLET) [Concomitant]
     Dosage: 500 MG, Q4H
  19. METOLAZONE [Concomitant]
  20. MORPHINE [Concomitant]
     Indication: PAIN
     Dosage: 5 MG, PRN
     Route: 048
  21. PROLIA [Suspect]
     Indication: OSTEOPOROSIS
     Dosage: UNK
     Dates: start: 20110921
  22. COREG [Concomitant]
  23. VITAMIN D [Concomitant]
  24. MORPHINE [Concomitant]
     Indication: AGITATION

REACTIONS (14)
  - ELECTROLYTE IMBALANCE [None]
  - ANAEMIA [None]
  - BACTERIAL TEST POSITIVE [None]
  - PLEURAL EFFUSION [None]
  - ATRIAL FIBRILLATION [None]
  - HYPOPHAGIA [None]
  - RENAL FAILURE ACUTE [None]
  - URINARY TRACT INFECTION [None]
  - SEPTIC SHOCK [None]
  - PNEUMONIA [None]
  - CARDIAC FAILURE CONGESTIVE [None]
  - MENTAL STATUS CHANGES [None]
  - SEPSIS [None]
  - CONFUSIONAL STATE [None]
